FAERS Safety Report 6127291-3 (Version None)
Quarter: 2009Q1

REPORT INFORMATION
  Report Type: 
  Country: None (occurrence: None)
  Receive Date: 20090321
  Receipt Date: 20090317
  Transmission Date: 20090719
  Serious: Yes (Other)
  Sender: FDA-Public Use
  Company Number: US-CELGENEUS-163-20785-08111012

PATIENT
  Sex: Male

DRUGS (7)
  1. THALOMID [Suspect]
     Indication: MULTIPLE MYELOMA
     Route: 048
     Dates: start: 20080914, end: 20081021
  2. MULTI-VITAMINS [Concomitant]
     Indication: DRUG USE FOR UNKNOWN INDICATION
     Route: 065
  3. COUMADIN [Concomitant]
     Indication: DRUG USE FOR UNKNOWN INDICATION
     Route: 065
     Dates: start: 20080916
  4. ASPIRIN [Concomitant]
     Indication: CAROTID ARTERY DISEASE
     Route: 065
  5. NORVASC [Concomitant]
     Indication: CAROTID ARTERY DISEASE
     Route: 065
     Dates: start: 20081209
  6. METOPROLOL SUCCINATE [Concomitant]
     Indication: HYPERTENSION
     Route: 065
  7. HYZAAR [Concomitant]
     Indication: HYPERTENSION
     Route: 065

REACTIONS (5)
  - CAROTID ARTERY OCCLUSION [None]
  - CONSTIPATION [None]
  - DRUG INTOLERANCE [None]
  - FATIGUE [None]
  - NAUSEA [None]
